FAERS Safety Report 6071553-5 (Version None)
Quarter: 2009Q1

REPORT INFORMATION
  Report Type: 
  Country: None (occurrence: None)
  Receive Date: 20090210
  Receipt Date: 20090203
  Transmission Date: 20090719
  Serious: Yes (Life-Threatening, Hospitalization)
  Sender: FDA-Public Use
  Company Number: DE-TEVA-183772ISR

PATIENT
  Sex: Male

DRUGS (4)
  1. AZILECT [Suspect]
     Indication: PARKINSON'S DISEASE
     Route: 048
     Dates: start: 20081101, end: 20090104
  2. PRAMIPEXOLE DIHYDROCHLORIDE [Concomitant]
     Indication: PARKINSON'S DISEASE
     Route: 048
  3. STALEVO 100 [Concomitant]
     Indication: PARKINSON'S DISEASE
     Route: 048
  4. AMANTADINE HCL [Concomitant]
     Indication: PARKINSON'S DISEASE
     Route: 048

REACTIONS (3)
  - FALL [None]
  - RENAL FAILURE ACUTE [None]
  - RHABDOMYOLYSIS [None]
